FAERS Safety Report 4704317-2 (Version None)
Quarter: 2005Q2

REPORT INFORMATION
  Report Type: 
  Country: None (occurrence: None)
  Receive Date: 20050630
  Receipt Date: 20050624
  Transmission Date: 20051028
  Serious: Yes (Hospitalization)
  Sender: FDA-Public Use
  Company Number: 2005PK01098

PATIENT
  Age: 47 Year
  Sex: Female

DRUGS (19)
  1. SEROQUEL [Suspect]
     Route: 048
     Dates: start: 20040623, end: 20040713
  2. SEROQUEL [Suspect]
     Route: 048
     Dates: start: 20040714, end: 20040718
  3. SAROTEN [Suspect]
     Route: 048
     Dates: start: 20040512, end: 20040513
  4. SAROTEN [Suspect]
     Route: 048
     Dates: start: 20040514, end: 20040518
  5. SAROTEN [Suspect]
     Route: 048
     Dates: start: 20040519, end: 20040607
  6. SAROTEN [Suspect]
     Route: 048
     Dates: start: 20040608, end: 20040610
  7. SAROTEN [Suspect]
     Route: 048
     Dates: start: 20040611, end: 20040615
  8. SAROTEN [Suspect]
     Route: 048
     Dates: start: 20040616, end: 20040617
  9. SAROTEN [Suspect]
     Route: 048
     Dates: start: 20040618, end: 20040711
  10. SAROTEN [Suspect]
     Route: 048
     Dates: start: 20040712, end: 20040715
  11. SAROTEN [Suspect]
     Route: 048
     Dates: start: 20040716, end: 20040718
  12. LAMICTAL [Concomitant]
     Dosage: LONG TERM MEDICATION
     Route: 048
  13. QUILONUM RETARD [Concomitant]
     Dosage: LONG TERM MEDICATION
     Route: 048
  14. EUTHYROX [Concomitant]
     Dosage: LONG TERM MEDICATION
     Route: 048
  15. GELOMYRTOL [Concomitant]
     Route: 048
     Dates: end: 20040718
  16. ACC 200 [Concomitant]
     Route: 048
     Dates: end: 20040718
  17. ASPIRIN [Concomitant]
     Dosage: LONG TERM MEDICATION
     Route: 048
  18. VALIQUID [Concomitant]
     Route: 048
     Dates: start: 20040216
  19. MOVICOL [Concomitant]
     Dosage: LONG TERM MEDICATION

REACTIONS (2)
  - HYPONATRAEMIA [None]
  - URINARY RETENTION [None]
